FAERS Safety Report 14549545 (Version 1)
Quarter: 2018Q1

REPORT INFORMATION
  Report Type: Not Available
  Country: US (occurrence: US)
  Receive Date: 20180219
  Receipt Date: 20180219
  Transmission Date: 20180509
  Serious: Yes (Hospitalization)
  Sender: FDA-Public Use
  Company Number: US-NEUROCRINE BIOSCIENCES INC.-2018NBI00441

PATIENT
  Sex: Male

DRUGS (9)
  1. LEXAPRO [Concomitant]
     Active Substance: ESCITALOPRAM OXALATE
  2. IBUPROFEN. [Concomitant]
     Active Substance: IBUPROFEN
  3. KLONOPIN [Concomitant]
     Active Substance: CLONAZEPAM
  4. INGREZZA [Suspect]
     Active Substance: VALBENAZINE
     Route: 048
     Dates: start: 20171102
  5. FISH OIL [Concomitant]
     Active Substance: FISH OIL
  6. SEROQUEL [Concomitant]
     Active Substance: QUETIAPINE FUMARATE
  7. INGREZZA [Suspect]
     Active Substance: VALBENAZINE
     Indication: PRODUCT USED FOR UNKNOWN INDICATION
     Route: 048
     Dates: start: 20171025, end: 20171101
  8. COGENTIN [Concomitant]
     Active Substance: BENZTROPINE MESYLATE
  9. INVEGA [Concomitant]
     Active Substance: PALIPERIDONE

REACTIONS (1)
  - Hospitalisation [Unknown]
